FAERS Safety Report 7693614-7 (Version None)
Quarter: 2011Q3

REPORT INFORMATION
  Report Type: 
  Country: None (occurrence: None)
  Receive Date: 20110819
  Receipt Date: 20110617
  Transmission Date: 20111222
  Serious: No
  Sender: FDA-Public Use
  Company Number: DE-ROCHE-598608

PATIENT
  Sex: Female

DRUGS (2)
  1. IBANDRONATE SODIUM [Suspect]
     Dosage: FORM: INFUSION, DOSE : 3 MG/90 ML
     Route: 065
     Dates: start: 20081201
  2. IBANDRONATE SODIUM [Suspect]
     Route: 065
     Dates: start: 20080922

REACTIONS (4)
  - FATIGUE [None]
  - DIZZINESS [None]
  - TACHYCARDIA [None]
  - DYSPNOEA [None]
